FAERS Safety Report 9266824 (Version 2)
Quarter: 2013Q2

REPORT INFORMATION
  Report Type: Report from Study
  Country: US (occurrence: US)
  Receive Date: 20130502
  Receipt Date: 20130522
  Transmission Date: 20140414
  Serious: Yes (Hospitalization)
  Sender: FDA-Public Use
  Company Number: US-UCBSA-083501

PATIENT
  Age: 20 Year
  Sex: Male
  Weight: 63.5 kg

DRUGS (9)
  1. CIMZIA [Suspect]
     Indication: CROHN^S DISEASE
     Route: 058
     Dates: start: 20110318
  2. AZATHIOPRINE [Suspect]
  3. FLAGYL [Concomitant]
     Indication: CROHN^S DISEASE
     Dates: start: 20101118
  4. ASACOL [Concomitant]
     Indication: CROHN^S DISEASE
     Dates: start: 20101118
  5. PREDNISONE [Concomitant]
     Indication: CROHN^S DISEASE
     Dates: start: 20101118, end: 20110616
  6. PREDNISONE [Concomitant]
     Indication: CROHN^S DISEASE
     Dates: start: 20110729, end: 20111214
  7. 6-MP [Concomitant]
     Indication: CROHN^S DISEASE
     Dates: start: 20110616
  8. CIPRO [Concomitant]
     Indication: CROHN^S DISEASE
     Dates: start: 20101217, end: 20110719
  9. PROTONIX [Concomitant]

REACTIONS (2)
  - Pancreatitis [Recovered/Resolved]
  - Clostridium difficile infection [Recovered/Resolved]
